FAERS Safety Report 23754938 (Version 2)
Quarter: 2024Q3

REPORT INFORMATION
  Report Type: Report from Study
  Country: CL (occurrence: CL)
  Receive Date: 20240418
  Receipt Date: 20240712
  Transmission Date: 20241017
  Serious: Yes (Other)
  Sender: SANDOZ
  Company Number: CL-002147023-NVSC2024CL078309

PATIENT
  Age: 34 Year
  Sex: Male

DRUGS (1)
  1. HYRIMOZ [Suspect]
     Active Substance: ADALIMUMAB-ADAZ
     Indication: Ankylosing spondylitis
     Dosage: 40 MG, BIW (ONCE EVERY 2 WEEKS)
     Route: 058
     Dates: start: 20231107, end: 202402

REACTIONS (15)
  - Blister [Unknown]
  - Cyst [Unknown]
  - Acne pustular [Recovered/Resolved]
  - Decreased immune responsiveness [Unknown]
  - Acne [Unknown]
  - Skin disorder [Unknown]
  - Illness [Unknown]
  - Burning sensation [Unknown]
  - Skin exfoliation [Unknown]
  - Peripheral swelling [Unknown]
  - Muscle spasms [Not Recovered/Not Resolved]
  - Nasopharyngitis [Unknown]
  - Influenza [Unknown]
  - Tonsillitis [Unknown]
  - Abdominal pain upper [Unknown]

NARRATIVE: CASE EVENT DATE: 20240101
